FAERS Safety Report 22394210 (Version 1)
Quarter: 2023Q2

REPORT INFORMATION
  Report Type: Spontaneous
  Country: US (occurrence: US)
  Receive Date: 20230601
  Receipt Date: 20230601
  Transmission Date: 20230722
  Serious: Yes (Disabling, Other)
  Sender: FDA-Public Use
  Company Number: US-SEBELA IRELAND LIMITED-2023SEB00038

PATIENT
  Age: 39 Year
  Sex: Male

DRUGS (4)
  1. BRISDELLE [Suspect]
     Active Substance: PAROXETINE MESYLATE
     Indication: Obsessive-compulsive disorder
     Dosage: 40 MG
  2. PAROXETINE [Suspect]
     Active Substance: PAROXETINE
     Indication: Obsessive-compulsive disorder
  3. PEXEVA [Suspect]
     Active Substance: PAROXETINE MESYLATE
     Indication: Obsessive-compulsive disorder
     Dosage: UNK
  4. PEXEVA [Suspect]
     Active Substance: PAROXETINE MESYLATE
     Indication: Obsessive-compulsive disorder
     Dosage: 30 MG, 2X/DAY

REACTIONS (4)
  - Craniocerebral injury [Not Recovered/Not Resolved]
  - Disability [Not Recovered/Not Resolved]
  - Road traffic accident [Recovered/Resolved]
  - Drug ineffective for unapproved indication [Recovered/Resolved]
